FAERS Safety Report 10015905 (Version 2)
Quarter: 2014Q2

REPORT INFORMATION
  Report Type: Spontaneous
  Country: US (occurrence: US)
  Receive Date: 20140317
  Receipt Date: 20140415
  Transmission Date: 20141212
  Serious: Yes (Other)
  Sender: FDA-Public Use
  Company Number: US-CELGENEUS-163-POMAL-14030811

PATIENT
  Age: 64 Year
  Sex: Male

DRUGS (20)
  1. POMALYST [Suspect]
     Indication: PLASMA CELL MYELOMA
     Dosage: 4 MILLIGRAM
     Route: 048
     Dates: start: 20130919
  2. POMALYST [Suspect]
     Dosage: 3 MILLIGRAM
     Route: 048
     Dates: start: 201402, end: 20140225
  3. POMALYST [Suspect]
     Route: 048
     Dates: start: 20140308
  4. GABAPENTIN [Concomitant]
     Indication: PRODUCT USED FOR UNKNOWN INDICATION
     Dosage: 600 MILLIGRAM
     Route: 048
  5. DEXAMETHASONE [Concomitant]
     Indication: PRODUCT USED FOR UNKNOWN INDICATION
     Route: 048
  6. METOLAZONE [Concomitant]
     Indication: PRODUCT USED FOR UNKNOWN INDICATION
     Dosage: .7143 MILLIGRAM
     Route: 048
  7. LORAZEPAM [Concomitant]
     Indication: NAUSEA
     Dosage: 2 MILLIGRAM
     Route: 048
  8. LEVOFLOXACIN [Concomitant]
     Indication: PROPHYLAXIS
     Dosage: 250 MILLIGRAM
     Route: 048
  9. HYDROCODONE/ACETAMINOPHEN [Concomitant]
     Indication: PAIN
     Dosage: 5-325MG
     Route: 048
  10. CARVEDILOL [Concomitant]
     Indication: PAIN
     Dosage: 25 MILLIGRAM
     Route: 048
  11. ALLOPURINOL [Concomitant]
     Indication: PRODUCT USED FOR UNKNOWN INDICATION
     Dosage: 200 MILLIGRAM
     Route: 048
  12. PROAIR HFA [Concomitant]
     Indication: PRODUCT USED FOR UNKNOWN INDICATION
     Route: 055
  13. CYANOCOBALAMIN [Concomitant]
     Indication: PRODUCT USED FOR UNKNOWN INDICATION
     Dosage: 1000 MILLIGRAM
     Route: 048
  14. FERROUS SULFATE [Concomitant]
     Indication: PRODUCT USED FOR UNKNOWN INDICATION
     Dosage: 325 MILLIGRAM
     Route: 048
  15. PRENATAL VITAMINS [Concomitant]
     Indication: PRODUCT USED FOR UNKNOWN INDICATION
     Route: 048
  16. VICODIN [Concomitant]
     Indication: PAIN
     Dosage: 5-500 MG
     Route: 048
  17. PRAVASTATIN [Concomitant]
     Indication: PAIN
     Dosage: 40 MILLIGRAM
     Route: 048
  18. SILVADENE [Concomitant]
     Indication: PRODUCT USED FOR UNKNOWN INDICATION
     Route: 061
  19. BUMEX [Concomitant]
     Indication: PAIN
     Dosage: 6 MILLIGRAM
     Route: 048
  20. WARFARIN [Concomitant]
     Indication: PAIN
     Dosage: 5 MILLIGRAM
     Route: 048

REACTIONS (1)
  - Pancytopenia [Recovered/Resolved]
